APPROVED DRUG PRODUCT: POTASSIUM PHOSPHATES IN 0.9% SODIUM CHLORIDE
Active Ingredient: POTASSIUM PHOSPHATE, DIBASIC; POTASSIUM PHOSPHATE, MONOBASIC
Strength: 1.18GM/100ML (11.8MG/ML);1.12GM/100ML (11.2MG/ML)
Dosage Form/Route: SOLUTION;INTRAVENOUS
Application: N212832 | Product #004
Applicant: FRESENIUS KABI USA LLC
Approved: May 9, 2025 | RLD: Yes | RS: Yes | Type: RX

PATENTS:
Patent 11925661 | Expires: Oct 12, 2041
Patent 11813291 | Expires: Oct 12, 2041